FAERS Safety Report 5239789-0 (Version None)
Quarter: 2007Q1

REPORT INFORMATION
  Report Type: 
  Country: None (occurrence: None)
  Receive Date: 20070216
  Receipt Date: 20070205
  Transmission Date: 20070707
  Serious: Yes (Hospitalization, Other)
  Sender: FDA-Public Use
  Company Number: 2007GB00254

PATIENT
  Age: 23307 Day
  Sex: Female

DRUGS (5)
  1. QUETIAPINE FUMARATE [Suspect]
     Indication: MANIA
     Route: 048
     Dates: start: 20040101, end: 20061101
  2. QUETIAPINE FUMARATE [Suspect]
     Route: 048
     Dates: start: 20061101, end: 20070122
  3. DEPAKOTE [Suspect]
     Indication: MANIA
     Route: 048
     Dates: start: 20061120, end: 20070122
  4. DIGOXIN [Concomitant]
     Indication: ATRIAL FIBRILLATION
     Route: 048
     Dates: start: 20070122
  5. ASPIRIN [Concomitant]
     Indication: ATRIAL FIBRILLATION
     Route: 048
     Dates: start: 20070122

REACTIONS (4)
  - ACTIVATED PARTIAL THROMBOPLASTIN TIME PROLONGED [None]
  - INTERNATIONAL NORMALISED RATIO INCREASED [None]
  - NEUTROPENIA [None]
  - THROMBOCYTOPENIA [None]
